FAERS Safety Report 18887648 (Version 2)
Quarter: 2021Q1

REPORT INFORMATION
  Report Type: Report from Study
  Country: US (occurrence: US)
  Receive Date: 20210212
  Receipt Date: 20210219
  Transmission Date: 20210420
  Serious: Yes (Other)
  Sender: FDA-Public Use
  Company Number: US-JNJFOC-20210208017

PATIENT
  Sex: Female
  Weight: 59.1 kg

DRUGS (4)
  1. SELEXIPAG [Suspect]
     Active Substance: SELEXIPAG
     Indication: PULMONARY ARTERIAL HYPERTENSION
     Route: 048
  2. SELEXIPAG [Suspect]
     Active Substance: SELEXIPAG
     Route: 048
  3. LETAIRIS [Concomitant]
     Active Substance: AMBRISENTAN
  4. ADCIRCA [Concomitant]
     Active Substance: TADALAFIL

REACTIONS (5)
  - Myalgia [Unknown]
  - Dyspnoea [Unknown]
  - Headache [Unknown]
  - Scleroderma [Unknown]
  - Fatigue [Unknown]
